FAERS Safety Report 7599551-0 (Version None)
Quarter: 2011Q3

REPORT INFORMATION
  Report Type: 
  Country: None (occurrence: None)
  Receive Date: 20110711
  Receipt Date: 20081028
  Transmission Date: 20111222
  Serious: No
  Sender: FDA-Public Use
  Company Number: 2008BI028944

PATIENT
  Age: 46 Year
  Sex: Female

DRUGS (1)
  1. TYSABRI [Suspect]
     Indication: MULTIPLE SCLEROSIS
     Route: 042
     Dates: start: 20061113

REACTIONS (6)
  - FOOT DEFORMITY [None]
  - ARTHROPATHY [None]
  - GAIT DISTURBANCE [None]
  - EXTREMITY CONTRACTURE [None]
  - JOINT ARTHROPLASTY [None]
  - TOE OPERATION [None]
